FAERS Safety Report 10262008 (Version 1)
Quarter: 2014Q2

REPORT INFORMATION
  Report Type: Spontaneous
  Country: DK (occurrence: DK)
  Receive Date: 20140626
  Receipt Date: 20140626
  Transmission Date: 20141212
  Serious: Yes (Hospitalization)
  Sender: FDA-Public Use
  Company Number: DK-GLAXOSMITHKLINE-A1051315A

PATIENT
  Age: 59 Year
  Sex: Female
  Weight: 52 kg

DRUGS (4)
  1. NICORETTE OTC GUM, ORIGINAL [Suspect]
     Indication: SMOKING CESSATION THERAPY
     Route: 002
     Dates: start: 20120808, end: 20130408
  2. KALEORID [Concomitant]
     Indication: HYPERTENSION
     Route: 065
     Dates: start: 20070101
  3. CITALOPRAM [Concomitant]
     Indication: DEPRESSION
     Route: 065
     Dates: start: 20070101
  4. SELO-ZOK [Concomitant]
     Indication: HYPERTENSION
     Route: 065
     Dates: start: 20070101

REACTIONS (1)
  - Convulsion [Recovered/Resolved]
